FAERS Safety Report 10922160 (Version 1)
Quarter: 2015Q1

REPORT INFORMATION
  Report Type: Spontaneous
  Country: US (occurrence: US)
  Receive Date: 20150317
  Receipt Date: 20150317
  Transmission Date: 20150721
  Serious: No
  Sender: FDA-Public Use
  Company Number: US-GLAXOSMITHKLINE-US2015GSK027966

PATIENT
  Age: 55 Year
  Sex: Female

DRUGS (4)
  1. LAMICTAL [Suspect]
     Active Substance: LAMOTRIGINE
     Indication: SEIZURE
     Dosage: 250 MG, 1D
     Route: 048
  2. KLONOPIN [Concomitant]
     Active Substance: CLONAZEPAM
  3. ONFI [Concomitant]
     Active Substance: CLOBAZAM
  4. CARBATROL [Concomitant]
     Active Substance: CARBAMAZEPINE

REACTIONS (2)
  - Oropharyngeal pain [Recovering/Resolving]
  - Nasopharyngitis [Recovering/Resolving]

NARRATIVE: CASE EVENT DATE: 20150223
